FAERS Safety Report 8265348-1 (Version None)
Quarter: 2012Q2

REPORT INFORMATION
  Report Type: 
  Country: None (occurrence: None)
  Receive Date: 20120406
  Receipt Date: 20120329
  Transmission Date: 20120825
  Serious: Yes (Life-Threatening, Hospitalization)
  Sender: FDA-Public Use
  Company Number: IT-TEVA-326247ISR

PATIENT
  Sex: Female

DRUGS (8)
  1. RANITIDINE [Concomitant]
     Indication: PREMEDICATION
     Route: 042
  2. AVASTIN [Suspect]
     Indication: IMMUNOMODULATORY THERAPY
     Dosage: 300 MILLIGRAM;
     Route: 042
     Dates: start: 20120221, end: 20120221
  3. AVASTIN [Suspect]
     Route: 042
     Dates: start: 20120130
  4. OXALIPLATIN [Suspect]
     Indication: COLON CANCER
     Dosage: 180 MILLIGRAM;
     Route: 042
     Dates: start: 20120221, end: 20120221
  5. OXALIPLATIN [Suspect]
     Route: 042
     Dates: start: 20120130
  6. XELODA [Concomitant]
     Route: 048
     Dates: start: 20120130
  7. GRANISETRON [Concomitant]
     Indication: PREMEDICATION
     Route: 042
  8. DEXAMETHASONE [Concomitant]
     Indication: PREMEDICATION
     Route: 042

REACTIONS (5)
  - THROAT TIGHTNESS [None]
  - ACUTE MYOCARDIAL INFARCTION [None]
  - HYPERTENSION [None]
  - NEUROPATHY PERIPHERAL [None]
  - DYSPNOEA [None]
